FAERS Safety Report 24267073 (Version 1)
Quarter: 2024Q3

REPORT INFORMATION
  Report Type: Spontaneous
  Country: US (occurrence: US)
  Receive Date: 20240830
  Receipt Date: 20240830
  Transmission Date: 20241016
  Serious: No
  Sender: ROCHE
  Company Number: US-ROCHE-10000068013

PATIENT
  Sex: Female

DRUGS (15)
  1. ACTEMRA [Suspect]
     Active Substance: TOCILIZUMAB
     Indication: Rheumatoid arthritis
     Route: 042
  2. CELECOXIB [Concomitant]
     Active Substance: CELECOXIB
  3. D3 CHE 62.5 MCG [Concomitant]
     Dosage: 2500 UT
  4. DICLOFENAC S GEL 3% [Concomitant]
  5. FLUTICASONE SUS SOMCG/AC [Concomitant]
  6. FOLIC ACID [Concomitant]
     Active Substance: FOLIC ACID
  7. HYDROCHLOROTHIAZIDE [Concomitant]
     Active Substance: HYDROCHLOROTHIAZIDE
  8. IBUPROFEN [Concomitant]
     Active Substance: IBUPROFEN
  9. LOSARTAN POTASSIUM [Concomitant]
     Active Substance: LOSARTAN POTASSIUM
  10. MECLIZINE [Concomitant]
     Active Substance: MECLIZINE HYDROCHLORIDE
  11. METHOTREXATE [Concomitant]
     Active Substance: METHOTREXATE
  12. PSEUDOEPH-BR [Concomitant]
  13. SERTRALINE [Concomitant]
     Active Substance: SERTRALINE HYDROCHLORIDE
  14. SULFASALAZINE DELAYED-RELEASE [Concomitant]
     Active Substance: SULFASALAZINE
  15. TYLENOL EXTR [Concomitant]

REACTIONS (1)
  - Developmental coordination disorder [Unknown]
